FAERS Safety Report 4555791-6 (Version None)
Quarter: 2005Q1

REPORT INFORMATION
  Report Type: 
  Country: None (occurrence: None)
  Receive Date: 20050112
  Receipt Date: 20040908
  Transmission Date: 20050727
  Serious: Yes (Other)
  Sender: FDA-Public Use
  Company Number: 200420485BWH

PATIENT
  Age: 91 Year
  Sex: Female
  Weight: 54.4316 kg

DRUGS (4)
  1. CIPRO [Suspect]
     Indication: CYSTITIS
     Dosage: 500 MG, TOTAL DAILY, ORAL
     Route: 048
     Dates: start: 20040831, end: 20040907
  2. METOPROLOL [Concomitant]
  3. PROTONIX [Concomitant]
  4. DEXAMETHASONE [Concomitant]

REACTIONS (3)
  - ANXIETY [None]
  - HALLUCINATION, VISUAL [None]
  - NIGHTMARE [None]
